FAERS Safety Report 4904919-4 (Version None)
Quarter: 2006Q1

REPORT INFORMATION
  Report Type: 
  Country: None (occurrence: None)
  Receive Date: 20060208
  Receipt Date: 20051021
  Transmission Date: 20060701
  Serious: No
  Sender: FDA-Public Use
  Company Number: US-GLAXOSMITHKLINE-A0579186A

PATIENT
  Age: 65 Year
  Sex: Male

DRUGS (4)
  1. PAROXETINE HCL [Suspect]
     Indication: DEPRESSION
     Dosage: 20MG PER DAY
     Route: 048
     Dates: start: 20050301
  2. ASPIRIN [Suspect]
  3. PAXIL [Concomitant]
  4. COZAAR [Concomitant]

REACTIONS (2)
  - CHANGE OF BOWEL HABIT [None]
  - CONSTIPATION [None]
